FAERS Safety Report 17511525 (Version 1)
Quarter: 2020Q1

REPORT INFORMATION
  Report Type: Spontaneous
  Country: US (occurrence: US)
  Receive Date: 20200306
  Receipt Date: 20200306
  Transmission Date: 20200409
  Serious: No
  Sender: FDA-Public Use
  Company Number: US-BAYER-2020-040080

PATIENT
  Age: 35 Year
  Sex: Female

DRUGS (1)
  1. ALEVE [Suspect]
     Active Substance: NAPROXEN SODIUM
     Indication: ARTHRITIS
     Dosage: UNK UNK, QID 2 IN THE MORNING AND NIGHT
     Route: 048
     Dates: start: 202002

REACTIONS (2)
  - Incorrect product administration duration [None]
  - Incorrect dosage administered [Unknown]

NARRATIVE: CASE EVENT DATE: 202002
